FAERS Safety Report 7361885-2 (Version None)
Quarter: 2011Q1

REPORT INFORMATION
  Report Type: 
  Country: None (occurrence: None)
  Receive Date: 20110318
  Receipt Date: 20110314
  Transmission Date: 20110831
  Serious: Yes (Hospitalization)
  Sender: FDA-Public Use
  Company Number: US-PFIZER INC-2011055592

PATIENT
  Sex: Female
  Weight: 63.492 kg

DRUGS (2)
  1. MUCINEX [Suspect]
     Indication: NASOPHARYNGITIS
     Dosage: UNK
  2. ROBITUSSIN [Suspect]
     Indication: NASOPHARYNGITIS
     Dosage: UNK

REACTIONS (4)
  - DIZZINESS [None]
  - SYNCOPE [None]
  - HEAD INJURY [None]
  - CARDIAC ARREST [None]
